APPROVED DRUG PRODUCT: AEROSEB-DEX
Active Ingredient: DEXAMETHASONE
Strength: 0.01% **Federal Register determination that product was not discontinued or withdrawn for safety or effectiveness reasons**
Dosage Form/Route: AEROSOL;TOPICAL
Application: A083296 | Product #002
Applicant: ALLERGAN HERBERT DIV ALLERGAN INC
Approved: Approved Prior to Jan 1, 1982 | RLD: No | RS: No | Type: DISCN